FAERS Safety Report 23822345 (Version 1)
Quarter: 2024Q2

REPORT INFORMATION
  Report Type: Report from Study
  Country: CN (occurrence: CN)
  Receive Date: 20240506
  Receipt Date: 20240506
  Transmission Date: 20240717
  Serious: Yes (Other)
  Sender: FDA-Public Use
  Company Number: CN-JNJFOC-20240500337

PATIENT
  Sex: Male

DRUGS (9)
  1. DARATUMUMAB [Suspect]
     Active Substance: DARATUMUMAB
     Indication: Acute lymphocytic leukaemia
     Dosage: FROM DAYS 0 TO 7
     Route: 042
  2. VENETOCLAX [Suspect]
     Active Substance: VENETOCLAX
     Indication: Acute lymphocytic leukaemia
     Dosage: FROM DAYS 0 TO 7
     Route: 048
  3. GRANULOCYTE COLONY-STIMULATING FACTOR NOS [Suspect]
     Active Substance: GRANULOCYTE COLONY-STIMULATING FACTOR NOS
     Indication: Acute lymphocytic leukaemia
     Dosage: FROM DAYS 0 TO 7
     Route: 058
  4. CYTARABINE [Suspect]
     Active Substance: CYTARABINE
     Indication: Acute lymphocytic leukaemia
     Dosage: DAY 1 - 7
     Route: 042
  5. CYTARABINE [Suspect]
     Active Substance: CYTARABINE
     Dosage: ON DAYS 1, 3, AND 5
     Route: 037
  6. ACLARUBICIN [Suspect]
     Active Substance: ACLARUBICIN
     Indication: Acute lymphocytic leukaemia
     Dosage: DAYS 1 TO 7
     Route: 042
  7. ETOPOSIDE [Suspect]
     Active Substance: ETOPOSIDE
     Indication: Acute lymphocytic leukaemia
     Dosage: DAYS 1 TO 7
     Route: 042
  8. METHOTREXATE [Suspect]
     Active Substance: METHOTREXATE
     Indication: Acute lymphocytic leukaemia
     Dosage: ON DAYS 1, 3, AND 5
     Route: 065
  9. DEXAMETHASONE [Suspect]
     Active Substance: DEXAMETHASONE
     Indication: Acute lymphocytic leukaemia
     Dosage: ON DAYS 1, 3, AND 5
     Route: 065

REACTIONS (31)
  - Neutropenia [Unknown]
  - Leukopenia [Unknown]
  - Thrombocytopenia [Unknown]
  - Lymphopenia [Unknown]
  - Anaemia [Unknown]
  - Bacteraemia [Unknown]
  - Gastrointestinal infection [Unknown]
  - Pneumonia [Unknown]
  - Hypokalaemia [Unknown]
  - Tumour lysis syndrome [Unknown]
  - Infusion related reaction [Recovered/Resolved]
  - Decreased appetite [Unknown]
  - Nausea [Unknown]
  - Abdominal distension [Unknown]
  - Chest pain [Unknown]
  - Tachycardia [Unknown]
  - Fatigue [Unknown]
  - Mouth ulceration [Unknown]
  - Oedema peripheral [Unknown]
  - Blood bilirubin increased [Unknown]
  - Blood creatinine increased [Unknown]
  - Hypoalbuminaemia [Unknown]
  - Hypocalcaemia [Unknown]
  - Hyponatraemia [Unknown]
  - Vomiting [Unknown]
  - Diarrhoea [Unknown]
  - Blood lactate dehydrogenase increased [Unknown]
  - Alanine aminotransferase abnormal [Unknown]
  - Aspartate aminotransferase abnormal [Unknown]
  - Therapeutic response unexpected [Unknown]
  - Off label use [Unknown]
